FAERS Safety Report 10913784 (Version 2)
Quarter: 2015Q2

REPORT INFORMATION
  Report Type: Spontaneous
  Country: US (occurrence: US)
  Receive Date: 20150313
  Receipt Date: 20150526
  Transmission Date: 20150821
  Serious: No
  Sender: FDA-Public Use
  Company Number: US-JNJFOC-20140116915

PATIENT
  Sex: Female

DRUGS (2)
  1. FLEXERIL [Suspect]
     Active Substance: CYCLOBENZAPRINE HYDROCHLORIDE
     Indication: MYALGIA
     Route: 065
  2. PARAFON FORTE [Suspect]
     Active Substance: CHLORZOXAZONE
     Indication: MYALGIA
     Route: 048

REACTIONS (1)
  - Hypersensitivity [Unknown]
